FAERS Safety Report 5745695-5 (Version None)
Quarter: 2008Q2

REPORT INFORMATION
  Report Type: 
  Country: None (occurrence: None)
  Receive Date: 20080521
  Receipt Date: 20080519
  Transmission Date: 20081010
  Serious: Yes (Death, Hospitalization)
  Sender: FDA-Public Use
  Company Number: TW-BOEHRINGER INGELHEIM GMBH, GERMANY-2008-BP-07781SG

PATIENT
  Sex: Male
  Weight: 65 kg

DRUGS (8)
  1. MICARDIS [Suspect]
     Indication: HYPERTENSION
     Route: 048
     Dates: start: 20080307, end: 20080405
  2. IMOVANE [Concomitant]
     Indication: INSOMNIA
     Route: 048
     Dates: start: 20071002, end: 20080402
  3. RIVOTRIL [Concomitant]
     Indication: INSOMNIA
     Route: 048
     Dates: start: 20071002, end: 20080402
  4. CTM [Concomitant]
     Indication: RHINITIS ALLERGIC
     Route: 048
     Dates: start: 20071002, end: 20080402
  5. ADALAT [Concomitant]
     Indication: HYPERTENSION
     Route: 048
     Dates: start: 20080108, end: 20080402
  6. VOREN [Concomitant]
     Indication: OSTEOARTHRITIS
     Route: 048
     Dates: start: 20071002, end: 20080402
  7. FUBIFEN [Concomitant]
     Indication: BACK PAIN
     Route: 062
     Dates: start: 20080205, end: 20080402
  8. HARNALIDGE [Concomitant]
     Indication: BENIGN PROSTATIC HYPERPLASIA
     Route: 048
     Dates: start: 20061204, end: 20080405

REACTIONS (3)
  - DUODENAL ULCER HAEMORRHAGE [None]
  - HYPOVOLAEMIC SHOCK [None]
  - SUDDEN CARDIAC DEATH [None]
